FAERS Safety Report 16523210 (Version 1)
Quarter: 2019Q3

REPORT INFORMATION
  Report Type: Spontaneous
  Country: US (occurrence: US)
  Receive Date: 20190702
  Receipt Date: 20190702
  Transmission Date: 20191004
  Serious: Yes (Other)
  Sender: FDA-Public Use
  Company Number: US-NAPPMUNDI-USA-2019-0147571

PATIENT
  Sex: Female

DRUGS (3)
  1. BUTRANS [Suspect]
     Active Substance: BUPRENORPHINE
     Dosage: 15 MCG/HR, WEEKLY
     Route: 062
     Dates: start: 201903
  2. BUTRANS [Suspect]
     Active Substance: BUPRENORPHINE
     Dosage: 10 MCG/HR, UNK
     Route: 062
  3. BUTRANS [Suspect]
     Active Substance: BUPRENORPHINE
     Indication: PRODUCT USED FOR UNKNOWN INDICATION
     Dosage: 20 MCG/HR, WEEKLY
     Route: 062
     Dates: start: 2011

REACTIONS (15)
  - Drug tolerance [Unknown]
  - Stenosis [Unknown]
  - Application site erythema [Unknown]
  - Systemic lupus erythematosus [Unknown]
  - Drug dependence [Unknown]
  - Product adhesion issue [Unknown]
  - Application site pruritus [Unknown]
  - Chronic fatigue syndrome [Unknown]
  - Rheumatoid arthritis [Unknown]
  - Intervertebral disc degeneration [Unknown]
  - Spinal fusion surgery [Unknown]
  - Wrong technique in product usage process [Recovered/Resolved]
  - Inadequate analgesia [Unknown]
  - Muscular weakness [Unknown]
  - Spondylitis [Unknown]
